FAERS Safety Report 8582421-9 (Version None)
Quarter: 2012Q3

REPORT INFORMATION
  Report Type: 
  Country: None (occurrence: None)
  Receive Date: 20120809
  Receipt Date: 20120803
  Transmission Date: 20120928
  Serious: Yes (Other)
  Sender: FDA-Public Use
  Company Number: JP-GLAXOSMITHKLINE-B0818274A

PATIENT
  Age: 71 Year
  Sex: Female

DRUGS (12)
  1. ZANTAC [Suspect]
     Dosage: 50MG TWO TIMES PER WEEK
     Route: 042
     Dates: start: 20120719, end: 20120719
  2. DECADRON PHOSPHATE [Suspect]
     Dosage: .3MG TWO TIMES PER WEEK
     Route: 042
     Dates: start: 20120607, end: 20120607
  3. CELESTAMINE TAB [Concomitant]
     Route: 048
  4. CARBOPLATIN [Concomitant]
     Route: 042
  5. ZANTAC [Suspect]
     Dosage: 50MG TWO TIMES PER WEEK
     Route: 042
  6. DECADRON PHOSPHATE [Suspect]
     Indication: PRODUCT USED FOR UNKNOWN INDICATION
     Dosage: .3MG TWO TIMES PER WEEK
     Route: 042
     Dates: start: 20120621, end: 20120621
  7. DECADRON PHOSPHATE [Suspect]
     Dosage: .3MG TWO TIMES PER WEEK
     Route: 042
     Dates: start: 20120719, end: 20120719
  8. PACLITAXEL [Concomitant]
     Route: 042
  9. ZANTAC [Suspect]
     Indication: PRODUCT USED FOR UNKNOWN INDICATION
     Dosage: 50MG TWO TIMES PER WEEK
     Route: 042
     Dates: start: 20120607, end: 20120607
  10. ZANTAC [Suspect]
     Dosage: 50MG TWO TIMES PER WEEK
     Route: 042
     Dates: start: 20120621, end: 20120621
  11. DECADRON PHOSPHATE [Suspect]
     Dosage: .3MG TWO TIMES PER WEEK
     Route: 042
  12. RAMOSETRON HYDROCHLORIDE [Concomitant]
     Route: 042

REACTIONS (4)
  - PALPITATIONS [None]
  - NAUSEA [None]
  - SHOCK [None]
  - COLD SWEAT [None]
